FAERS Safety Report 20865787 (Version 2)
Quarter: 2022Q2

REPORT INFORMATION
  Report Type: Spontaneous
  Country: US (occurrence: US)
  Receive Date: 20220524
  Receipt Date: 20220618
  Transmission Date: 20220721
  Serious: No
  Sender: FDA-Public Use
  Company Number: US-BRISTOL-MYERS SQUIBB COMPANY-2022-031963

PATIENT
  Age: 83 Year
  Sex: Male

DRUGS (1)
  1. REVLIMID [Suspect]
     Active Substance: LENALIDOMIDE
     Indication: Spinal cord disorder
     Dosage: FREQUENCY : TAKE 1 CAPSULE (10 MG) BY MOUTH DAILY FOR 14 DAYS, THEN 7 DAYS OFF. REPEAT EVERY 21 DAYS
     Route: 048
     Dates: end: 20220428

REACTIONS (1)
  - Intentional product use issue [Unknown]
